FAERS Safety Report 4470461-0 (Version None)
Quarter: 2004Q4

REPORT INFORMATION
  Report Type: 
  Country: None (occurrence: None)
  Receive Date: 20041005
  Receipt Date: 20040922
  Transmission Date: 20050328
  Serious: Yes (Death)
  Sender: FDA-Public Use
  Company Number: 2004AP02161

PATIENT
  Age: 67 Year
  Sex: Female

DRUGS (18)
  1. IRESSA [Suspect]
     Indication: LUNG ADENOCARCINOMA
     Dosage: 250 MG DAILY PO
     Route: 048
     Dates: start: 20021115, end: 20021206
  2. IRESSA [Suspect]
     Indication: LUNG ADENOCARCINOMA
     Dosage: 250 MG DAILY PO
     Route: 048
     Dates: start: 20021218, end: 20021225
  3. IRESSA [Suspect]
     Indication: LUNG ADENOCARCINOMA
     Dosage: 250 MG DAILY PO
     Route: 048
     Dates: start: 20030110, end: 20030203
  4. PREDONINE [Concomitant]
  5. D ALFA [Concomitant]
  6. CALCIUM LACTATE [Concomitant]
  7. NO MATCH [Concomitant]
  8. MYSLEE [Concomitant]
  9. SELBEX [Concomitant]
  10. NAIXAN [Concomitant]
  11. LAXOBERON [Concomitant]
  12. LASIX [Concomitant]
  13. ALDACTONE [Concomitant]
  14. PARIET [Concomitant]
  15. PRAMIEL [Concomitant]
  16. PACLITAXEL [Concomitant]
  17. CARBOPLATIN [Concomitant]
  18. RADIOTHERAPY [Concomitant]

REACTIONS (15)
  - ANAEMIA [None]
  - C-REACTIVE PROTEIN INCREASED [None]
  - CARDIOMEGALY [None]
  - CONDITION AGGRAVATED [None]
  - DRUG INEFFECTIVE [None]
  - EPISTAXIS [None]
  - FUNGAL INFECTION [None]
  - HERPES VIRUS INFECTION [None]
  - INTERSTITIAL LUNG DISEASE [None]
  - LUNG ADENOCARCINOMA STAGE IV [None]
  - MALIGNANT NEOPLASM PROGRESSION [None]
  - NASOPHARYNGITIS [None]
  - PLATELET COUNT DECREASED [None]
  - PYREXIA [None]
  - STOMATITIS [None]
